FAERS Safety Report 11766868 (Version 1)
Quarter: 2015Q4

REPORT INFORMATION
  Report Type: Spontaneous
  Country: US (occurrence: US)
  Receive Date: 20151123
  Receipt Date: 20151123
  Transmission Date: 20160304
  Serious: No
  Sender: FDA-Public Use
  Company Number: US-PAR PHARMACEUTICAL, INC-2015SCPR010432

PATIENT

DRUGS (1)
  1. ACCOLATE [Suspect]
     Active Substance: ZAFIRLUKAST
     Indication: ASTHMA
     Dosage: 2 DF, OD
     Route: 048
     Dates: start: 1974

REACTIONS (2)
  - Erythema [Recovered/Resolved]
  - Product substitution issue [None]

NARRATIVE: CASE EVENT DATE: 201412
